FAERS Safety Report 8849574 (Version 3)
Quarter: 2013Q2

REPORT INFORMATION
  Report Type: Spontaneous
  Country: US (occurrence: US)
  Receive Date: 20121019
  Receipt Date: 20130424
  Transmission Date: 20140414
  Serious: No
  Sender: FDA-Public Use
  Company Number: US-009507513-1210USA007370

PATIENT
  Sex: Female

DRUGS (1)
  1. VYTORIN [Suspect]
     Indication: BLOOD CHOLESTEROL ABNORMAL
     Dosage: 10/10 MG, UNK
     Route: 048
     Dates: end: 201210

REACTIONS (2)
  - Muscle spasms [Recovered/Resolved]
  - Sleep disorder [Unknown]
